FAERS Safety Report 13798542 (Version 1)
Quarter: 2017Q3

REPORT INFORMATION
  Report Type: Spontaneous
  Country: ES (occurrence: ES)
  Receive Date: 20170727
  Receipt Date: 20170727
  Transmission Date: 20171127
  Serious: Yes (Other)
  Sender: FDA-Public Use
  Company Number: ES-PFIZER INC-1129529

PATIENT
  Age: 52 Year
  Sex: Female

DRUGS (4)
  1. DOXORUBICIN HYDROCHLORIDE. [Concomitant]
     Active Substance: DOXORUBICIN HYDROCHLORIDE
     Indication: OESOPHAGEAL SQUAMOUS CELL CARCINOMA
     Dosage: 30 MG/M^2 EVERY 2 WEEKS
     Route: 041
  2. DOCETAXEL. [Suspect]
     Active Substance: DOCETAXEL
     Indication: OESOPHAGEAL SQUAMOUS CELL CARCINOMA
     Dosage: 40 MG/M^2 EVERY 2 WEEKS
     Route: 041
  3. GRAPEFRUIT JUICE [Interacting]
     Active Substance: GRAPEFRUIT JUICE
     Indication: PRODUCT USED FOR UNKNOWN INDICATION
     Dosage: 250 ML DAILY
  4. GEMCITABINE HYDROCHLORIDE. [Concomitant]
     Active Substance: GEMCITABINE HYDROCHLORIDE
     Indication: OESOPHAGEAL SQUAMOUS CELL CARCINOMA
     Dosage: 800MG/M^2 EVERY 2 WEEKS
     Route: 041

REACTIONS (5)
  - Drug clearance decreased [Recovering/Resolving]
  - Food interaction [Recovering/Resolving]
  - Neutrophil count decreased [Recovering/Resolving]
  - Drug interaction [Recovering/Resolving]
  - Chemotherapeutic drug level increased [Recovering/Resolving]
